FAERS Safety Report 13651546 (Version 1)
Quarter: 2017Q2

REPORT INFORMATION
  Report Type: Spontaneous
  Country: JP (occurrence: JP)
  Receive Date: 20170614
  Receipt Date: 20170614
  Transmission Date: 20170830
  Serious: Yes (Hospitalization)
  Sender: FDA-Public Use
  Company Number: JP-TEVA-2017-JP-001786J

PATIENT
  Age: 56 Year
  Sex: Male

DRUGS (1)
  1. IBUPROFEN TABLET 100MG ^TAIYO^ [Suspect]
     Active Substance: IBUPROFEN
     Indication: PRODUCT USED FOR UNKNOWN INDICATION
     Route: 065
     Dates: start: 201606, end: 201606

REACTIONS (2)
  - Drug-induced liver injury [Unknown]
  - Granulocytopenia [Unknown]
